FAERS Safety Report 9470980 (Version 1)
Quarter: 2013Q3

REPORT INFORMATION
  Report Type: Spontaneous
  Country: JP (occurrence: None)
  Receive Date: 20130816
  Receipt Date: 20130816
  Transmission Date: 20140515
  Serious: Yes (Hospitalization)
  Sender: FDA-Public Use
  Company Number: 2013-002033

PATIENT
  Age: 14 Year
  Sex: Male

DRUGS (10)
  1. BENET [Suspect]
     Indication: OSTEOPOROSIS
     Dosage: 17.5 MG ONE DOSE ONLY, ORAL
     Route: 048
     Dates: start: 20130525, end: 20130525
  2. BENET [Suspect]
     Indication: OSTEOPOROSIS
     Dosage: 2.5 MG WEEKLY, ORAL
     Route: 048
     Dates: start: 201208, end: 201212
  3. PREDNISOLONE (PREDNISOLONE) [Concomitant]
  4. DEPAKENE [Concomitant]
  5. LASIX (FUROSEMIDE) [Concomitant]
  6. ANGINAL (DIPYRIDAMOLE) [Concomitant]
  7. INTAL (CROMOGLICATE SODIUM) [Concomitant]
  8. SINGULAIR [Concomitant]
  9. GASTER D (FAMOTIDINE) [Concomitant]
  10. ALDACTONE A (SPIRONOLACTONE) [Concomitant]

REACTIONS (6)
  - Hypocalcaemic seizure [None]
  - Loss of consciousness [None]
  - Moaning [None]
  - Convulsion [None]
  - Hypocalcaemia [None]
  - Tetany [None]
